FAERS Safety Report 25426222 (Version 1)
Quarter: 2025Q2

REPORT INFORMATION
  Report Type: Spontaneous
  Country: CN (occurrence: CN)
  Receive Date: 20250612
  Receipt Date: 20250612
  Transmission Date: 20250717
  Serious: Yes (Hospitalization, Other)
  Sender: BAXTER
  Company Number: None

PATIENT
  Age: 52 Year
  Sex: Female
  Weight: 60 kg

DRUGS (4)
  1. CYCLOPHOSPHAMIDE [Suspect]
     Active Substance: CYCLOPHOSPHAMIDE
     Indication: Breast cancer female
     Dosage: 0.97 G, QD, 0.2G/PIECE+ .9% SODIUM CHLORIDE INJECTION
     Route: 041
     Dates: start: 20250527, end: 20250602
  2. DOXORUBICIN HYDROCHLORIDE [Suspect]
     Active Substance: DOXORUBICIN HYDROCHLORIDE
     Indication: Breast cancer female
     Dosage: 55 MG, QD, 10MG/BOTTLE/ 5% GS(GLUCOSE SOLUTION) 250ML
     Route: 041
     Dates: start: 20250527, end: 20250602
  3. SODIUM CHLORIDE [Suspect]
     Active Substance: SODIUM CHLORIDE
     Indication: Medication dilution
     Dosage: 100 ML, QD, 100ML/BOTTLE+ + CYCLOPHOSPHAMIDE FOR INJECTION
     Route: 041
     Dates: start: 20250527, end: 20250602
  4. DEXTROSE [Suspect]
     Active Substance: DEXTROSE MONOHYDRATE
     Indication: Medication dilution
     Dosage: 250 ML, QD+ DOXORUBICIN HYDROCHLORIDE LIPOSOME INJECTION
     Route: 041
     Dates: start: 20250527, end: 20250602

REACTIONS (6)
  - Mouth ulceration [Recovering/Resolving]
  - Palmar-plantar erythrodysaesthesia syndrome [Recovering/Resolving]
  - Induration [Recovering/Resolving]
  - Pain in extremity [Recovering/Resolving]
  - Blister [Recovering/Resolving]
  - Erythema [Recovering/Resolving]

NARRATIVE: CASE EVENT DATE: 20250531
